FAERS Safety Report 6947112-6 (Version None)
Quarter: 2010Q3

REPORT INFORMATION
  Report Type: 
  Country: None (occurrence: None)
  Receive Date: 20100827
  Receipt Date: 20090824
  Transmission Date: 20110219
  Serious: No
  Sender: FDA-Public Use
  Company Number: US-ABBOTT-09P-163-0593962-00

PATIENT
  Sex: Female
  Weight: 49.032 kg

DRUGS (12)
  1. NIASPAN [Suspect]
     Indication: BLOOD CHOLESTEROL INCREASED
     Route: 048
     Dates: start: 20090601, end: 20090601
  2. NIACIN [Suspect]
     Indication: BLOOD CHOLESTEROL INCREASED
     Route: 048
  3. ASPIRIN [Concomitant]
     Indication: PROPHYLAXIS
     Route: 048
     Dates: start: 20090601
  4. ASPIRIN [Concomitant]
     Indication: FLUSHING
  5. DYAZIDE [Concomitant]
     Indication: BLOOD PRESSURE
     Dosage: 37.5/25
     Route: 048
  6. PRINIVIL [Concomitant]
     Indication: HYPERTENSION
     Route: 048
  7. LEXAPRO [Concomitant]
     Indication: ARTHRALGIA
     Route: 048
  8. FENTANYL CITRATE [Concomitant]
     Indication: ARTHRALGIA
     Route: 061
  9. LEXAPRO [Concomitant]
     Indication: ANXIOLYTIC THERAPY
     Route: 048
  10. LEXAPRO [Concomitant]
     Indication: CRYING
  11. FOLIC ACID [Concomitant]
     Indication: VITAMIN SUPPLEMENTATION
     Route: 048
  12. VALIUM [Concomitant]
     Indication: ANXIOLYTIC THERAPY
     Route: 048

REACTIONS (3)
  - LIP EXFOLIATION [None]
  - LIP PAIN [None]
  - LIP SWELLING [None]
